FAERS Safety Report 20053565 (Version 1)
Quarter: 2021Q4

REPORT INFORMATION
  Report Type: Spontaneous
  Country: None (occurrence: US)
  Receive Date: 20211110
  Receipt Date: 20211110
  Transmission Date: 20220303
  Serious: Yes (Other)
  Sender: FDA-Public Use
  Company Number: US-Hygenic Corporation-2121675

PATIENT

DRUGS (1)
  1. BIOFREEZE [Suspect]
     Active Substance: MENTHOL
     Indication: Analgesic therapy
     Route: 061

REACTIONS (2)
  - Thermal burn [Unknown]
  - Skin exfoliation [Unknown]
